FAERS Safety Report 14676776 (Version 1)
Quarter: 2018Q1

REPORT INFORMATION
  Report Type: Spontaneous
  Country: FR (occurrence: FR)
  Receive Date: 20180324
  Receipt Date: 20180324
  Transmission Date: 20180509
  Serious: Yes (Other)
  Sender: FDA-Public Use
  Company Number: FR-ROCHE-2090555

PATIENT
  Age: 64 Year
  Sex: Male
  Weight: 120 kg

DRUGS (6)
  1. KARDEGIC [Concomitant]
     Active Substance: ASPIRIN DL-LYSINE
     Route: 048
     Dates: start: 20150507
  2. ZELBORAF [Suspect]
     Active Substance: VEMURAFENIB
     Indication: COLON CANCER
     Route: 048
     Dates: start: 20171005, end: 20171129
  3. ATENOLOL. [Concomitant]
     Active Substance: ATENOLOL
     Route: 065
     Dates: start: 20150507
  4. NISISCO [Concomitant]
     Active Substance: HYDROCHLOROTHIAZIDE\VALSARTAN
     Route: 048
     Dates: start: 20171206
  5. EZETROL [Concomitant]
     Active Substance: EZETIMIBE
     Route: 048
  6. ADENURIC [Concomitant]
     Active Substance: FEBUXOSTAT
     Route: 065
     Dates: start: 20151229

REACTIONS (8)
  - Erythema [Recovering/Resolving]
  - Incorrect dose administered [Unknown]
  - Accidental underdose [Unknown]
  - Dry skin [Recovering/Resolving]
  - Dermatitis acneiform [Recovered/Resolved]
  - Swelling face [Recovered/Resolved]
  - Dry eye [Recovering/Resolving]
  - Product use in unapproved indication [Unknown]

NARRATIVE: CASE EVENT DATE: 20171005
